FAERS Safety Report 18921289 (Version 2)
Quarter: 2021Q1

REPORT INFORMATION
  Report Type: Spontaneous
  Country: MX (occurrence: MX)
  Receive Date: 20210222
  Receipt Date: 20210313
  Transmission Date: 20210420
  Serious: Yes (Hospitalization)
  Sender: FDA-Public Use
  Company Number: MX-ROCHE-2774852

PATIENT
  Age: 8 Year
  Sex: Male

DRUGS (3)
  1. MOMETASONE [Concomitant]
     Active Substance: MOMETASONE
     Indication: RHINITIS ALLERGIC
     Dosage: 1 DF, Q24H
     Route: 055
     Dates: start: 202007
  2. OMALIZUMAB. [Suspect]
     Active Substance: OMALIZUMAB
     Indication: ASTHMA
     Route: 058
     Dates: start: 20200608
  3. BUDESONIDE. [Concomitant]
     Active Substance: BUDESONIDE
     Indication: ASTHMA
     Dosage: 1 DF, Q24H
     Route: 055
     Dates: start: 202007

REACTIONS (6)
  - Abdominal pain [Recovered/Resolved]
  - Infection [Unknown]
  - Pyrexia [Recovering/Resolving]
  - Neutrophil count increased [Unknown]
  - White blood cell count increased [Unknown]
  - Appendicitis [Recovering/Resolving]

NARRATIVE: CASE EVENT DATE: 20210205
